FAERS Safety Report 4302119-2 (Version None)
Quarter: 2004Q1

REPORT INFORMATION
  Report Type: 
  Country: None (occurrence: None)
  Receive Date: 20040220
  Receipt Date: 20040213
  Transmission Date: 20041129
  Serious: Yes (Hospitalization, Other)
  Sender: FDA-Public Use
  Company Number: US-JNJFOC-20040203070

PATIENT
  Age: 64 Year
  Sex: Male

DRUGS (13)
  1. NATRECOR [Suspect]
     Indication: CARDIAC FAILURE CONGESTIVE
     Dosage: 2 UG/KG, INTRAVENOUS;  0.01 UG/KG/MIN, INTRAVENOUS
     Route: 042
     Dates: start: 20040212, end: 20040212
  2. NATRECOR [Suspect]
     Indication: CARDIAC FAILURE CONGESTIVE
     Dosage: 2 UG/KG, INTRAVENOUS;  0.01 UG/KG/MIN, INTRAVENOUS
     Route: 042
     Dates: start: 20040212, end: 20040212
  3. DIGOXIN [Concomitant]
  4. ACETYLSALICYLIC ACID SRT [Concomitant]
  5. ZESTRIL [Concomitant]
  6. LIPITOR [Concomitant]
  7. FLOMAX [Concomitant]
  8. TOPROL-XL [Concomitant]
  9. ZOLOFT [Concomitant]
  10. COUMADIN [Concomitant]
  11. INSULIN [Concomitant]
  12. NEURONTIN [Concomitant]
  13. LASIX [Concomitant]

REACTIONS (7)
  - CHILLS [None]
  - HYPERGLYCAEMIA [None]
  - HYPERTENSION [None]
  - HYPERVENTILATION [None]
  - HYPOTHERMIA [None]
  - TACHYPNOEA [None]
  - WEIGHT INCREASED [None]
